FAERS Safety Report 5948067-3 (Version None)
Quarter: 2008Q4

REPORT INFORMATION
  Report Type: 
  Country: None (occurrence: None)
  Receive Date: 20081111
  Receipt Date: 20081008
  Transmission Date: 20090506
  Serious: No
  Sender: FDA-Public Use
  Company Number: US-BAYER-200835254NA

PATIENT
  Age: 51 Year
  Sex: Male
  Weight: 83 kg

DRUGS (9)
  1. ULTRAVIST 370 [Suspect]
     Indication: ANGIOGRAM
     Dosage: TOTAL DAILY DOSE: 125 ML  UNIT DOSE: 125 ML
     Route: 042
     Dates: start: 20081006, end: 20081006
  2. ARICEPT [Concomitant]
  3. VIAGRA [Concomitant]
  4. SIMVASTATIN [Concomitant]
  5. COUMADIN [Concomitant]
  6. GABAPENTIN [Concomitant]
  7. CITALOPRAM HYDROBROMIDE [Concomitant]
  8. AMLODIPINE [Concomitant]
  9. LAMICTAL [Concomitant]

REACTIONS (2)
  - PRURITUS [None]
  - URTICARIA [None]
